FAERS Safety Report 5042932-X (Version None)
Quarter: 2006Q2

REPORT INFORMATION
  Report Type: 
  Country: None (occurrence: None)
  Receive Date: 20060628
  Receipt Date: 20060606
  Transmission Date: 20061013
  Serious: Yes (Hospitalization)
  Sender: FDA-Public Use
  Company Number: US200606001852

PATIENT
  Sex: Female

DRUGS (2)
  1. HUMALOG 25% LISPRO, 75% NPL (LISPRO 25% LISPRO 25%, 75% NPL) VIAL [Suspect]
     Indication: DIABETES MELLITUS
     Dates: start: 20040101
  2. LANTUS [Concomitant]

REACTIONS (3)
  - AMNESIA [None]
  - CEREBROVASCULAR ACCIDENT [None]
  - TRANSIENT ISCHAEMIC ATTACK [None]
